FAERS Safety Report 24665145 (Version 1)
Quarter: 2024Q4

REPORT INFORMATION
  Report Type: Spontaneous
  Country: US (occurrence: US)
  Receive Date: 20241126
  Receipt Date: 20241126
  Transmission Date: 20250114
  Serious: Yes (Other)
  Sender: AMGEN
  Company Number: US-AMGEN-USASP2024229394

PATIENT
  Age: 60 Year
  Sex: Male

DRUGS (1)
  1. CARFILZOMIB [Suspect]
     Active Substance: CARFILZOMIB
     Indication: Plasma cell myeloma refractory
     Dosage: UNK
     Route: 065

REACTIONS (9)
  - Atypical haemolytic uraemic syndrome [Recovering/Resolving]
  - Renal impairment [Not Recovered/Not Resolved]
  - Thrombotic microangiopathy [Unknown]
  - Influenza A virus test positive [Unknown]
  - Rhonchi [Unknown]
  - Lung opacity [Unknown]
  - Productive cough [Unknown]
  - Pyrexia [Unknown]
  - Heart rate increased [Unknown]
